FAERS Safety Report 15957301 (Version 1)
Quarter: 2019Q1

REPORT INFORMATION
  Report Type: Spontaneous
  Country: BR (occurrence: BR)
  Receive Date: 20190213
  Receipt Date: 20190213
  Transmission Date: 20190417
  Serious: Yes (Other)
  Sender: FDA-Public Use
  Company Number: PHHY2019BR017398

PATIENT
  Age: 87 Year
  Sex: Female
  Weight: 75 kg

DRUGS (1)
  1. AZORGA [Suspect]
     Active Substance: BRINZOLAMIDE\TIMOLOL MALEATE
     Indication: GLAUCOMA
     Dosage: 1 GTT, Q12H
     Route: 047

REACTIONS (8)
  - Delirium [Unknown]
  - Gait disturbance [Recovering/Resolving]
  - Memory impairment [Unknown]
  - Confusional state [Recovering/Resolving]
  - Motor dysfunction [Recovering/Resolving]
  - Hypoacusis [Unknown]
  - Hallucination [Unknown]
  - Visual impairment [Recovering/Resolving]

NARRATIVE: CASE EVENT DATE: 20190122
